FAERS Safety Report 8226352-2 (Version None)
Quarter: 2012Q1

REPORT INFORMATION
  Report Type: 
  Country: None (occurrence: None)
  Receive Date: 20120307
  Receipt Date: 20091229
  Transmission Date: 20120608
  Serious: Yes (Death)
  Sender: FDA-Public Use
  Company Number: PHEH2009US15751

PATIENT
  Sex: Male

DRUGS (1)
  1. AFINITOR [Suspect]
     Indication: RENAL CANCER STAGE IV
     Dosage: 10 MG, QD, ORAL
     Route: 048
     Dates: end: 20091001

REACTIONS (1)
  - RENAL CANCER METASTATIC [None]
